FAERS Safety Report 7864750-7 (Version None)
Quarter: 2012Q1

REPORT INFORMATION
  Report Type: 
  Country: None (occurrence: None)
  Receive Date: 20111025
  Receipt Date: 20111010
  Transmission Date: 20120608
  Serious: Yes (Other)
  Sender: FDA-Public Use
  Company Number: US-JNJFOC-20111007878

PATIENT

DRUGS (2)
  1. DACOGEN [Suspect]
     Indication: MYELOID LEUKAEMIA
     Dosage: 20 MG/M2, INTRAVENOUS
     Route: 042
  2. CYTARABINE [Suspect]
     Indication: MYELOID LEUKAEMIA
     Dosage: 100 MG/M2 , 1 IN 1 D, INTRAVENOUS
     Route: 042

REACTIONS (2)
  - GASTROINTESTINAL DISORDER [None]
  - TOXICITY TO VARIOUS AGENTS [None]
